FAERS Safety Report 5239546-5 (Version None)
Quarter: 2007Q1

REPORT INFORMATION
  Report Type: 
  Country: None (occurrence: None)
  Receive Date: 20070209
  Receipt Date: 20070130
  Transmission Date: 20070707
  Serious: No
  Sender: FDA-Public Use
  Company Number: 2006-150955-NL

PATIENT
  Age: 17 Year
  Sex: Female

DRUGS (1)
  1. ETONOGESTREL [Suspect]
     Dosage: DF

REACTIONS (9)
  - ANXIETY [None]
  - BLOOD CORTISOL DECREASED [None]
  - CONSTIPATION [None]
  - DIZZINESS [None]
  - HEADACHE [None]
  - ILL-DEFINED DISORDER [None]
  - PAIN IN EXTREMITY [None]
  - PARTIAL SEIZURES [None]
  - VISION BLURRED [None]
